FAERS Safety Report 9116792 (Version 1)
Quarter: 2013Q1

REPORT INFORMATION
  Report Type: Spontaneous
  Country: US (occurrence: US)
  Receive Date: 20130225
  Receipt Date: 20130225
  Transmission Date: 20140127
  Serious: Yes (Hospitalization)
  Sender: FDA-Public Use
  Company Number: US-BAYER-2013-022335

PATIENT
  Age: 56 Year
  Sex: Female
  Weight: 92.52 kg

DRUGS (32)
  1. YAZ [Suspect]
     Indication: CONTRACEPTION
  2. YAZ [Suspect]
     Indication: OESTROGEN THERAPY
  3. YASMIN [Suspect]
  4. OCELLA [Suspect]
  5. BUPROPION HYDROCHLORIDE [Concomitant]
     Dosage: 150 MG, UNK
     Route: 048
  6. LISINOPRIL HYDROCHLORTHIAZID [Concomitant]
     Dosage: 20-25 MG
     Route: 048
  7. PATANOL [Concomitant]
     Dosage: 0.1 UNK, UNK
     Route: 061
  8. SINGULAIR [Concomitant]
     Dosage: 10 MG, UNK
     Route: 048
  9. LANSOPRAZOLE [Concomitant]
     Dosage: 30 MG, UNK
     Route: 048
  10. SYNTHROID [Concomitant]
     Dosage: 75 ?G, UNK
     Route: 048
  11. SOLU-MEDROL [Concomitant]
     Dosage: 125 MG, UNK
     Route: 042
  12. DUONEB [Concomitant]
     Indication: WHEEZING
  13. POTASSIUM [Concomitant]
     Indication: HYPOKALAEMIA
     Dosage: 20 MEQ, UNK
     Route: 048
  14. TYLENOL [Concomitant]
     Indication: CHEST PAIN
     Route: 048
  15. ROCEPHIN [Concomitant]
     Indication: PNEUMONIA
     Dosage: 1 G, UNK
     Route: 042
  16. MUCINEX [Concomitant]
     Dosage: 600 MG, UNK
     Route: 048
  17. ALEVE [Concomitant]
     Route: 048
  18. BENZONATATE [Concomitant]
     Dosage: 200 MG, UNK
     Route: 048
  19. AZITHROMYCIN [Concomitant]
     Dosage: 250 MG, UNK
  20. AZITHROMYCIN [Concomitant]
     Dosage: 500 MG, UNK
     Route: 048
  21. PREVACID [Concomitant]
     Dosage: 30 MG,DAILY
     Route: 048
  22. CALCIUM D [Concomitant]
     Dosage: DAILY
     Route: 048
  23. VITAMIN B [Concomitant]
     Dosage: DAILY
     Route: 048
  24. MULTIVITAMIN [Concomitant]
     Dosage: DAILY
  25. NASACORT [Concomitant]
     Indication: MULTIPLE ALLERGIES
     Route: 045
  26. ALBUTEROL [Concomitant]
     Indication: ASTHMA
     Route: 045
  27. ADVAIR [Concomitant]
     Indication: ASTHMA
     Dosage: 100/500 TWICE DAILY
     Route: 045
  28. DESONIDE [Concomitant]
     Route: 061
  29. OXYCODONE [Concomitant]
     Indication: PAIN
  30. DILAUDID [Concomitant]
  31. WELLBUTRIN [Concomitant]
  32. TESSALON PERLES [Concomitant]
     Indication: COUGH

REACTIONS (3)
  - Splenic vein thrombosis [None]
  - Arterial thrombosis [None]
  - Splenic infarction [None]
